FAERS Safety Report 7106455-6 (Version None)
Quarter: 2010Q4

REPORT INFORMATION
  Report Type: 
  Country: None (occurrence: None)
  Receive Date: 20101116
  Receipt Date: 20101103
  Transmission Date: 20110411
  Serious: Yes (Hospitalization)
  Sender: FDA-Public Use
  Company Number: DE-NICOBRDEV-2010-14524

PATIENT
  Sex: Male
  Weight: 77 kg

DRUGS (3)
  1. KENTERA (WATSON LABORATORIES) [Suspect]
     Indication: MICTURITION URGENCY
     Dosage: 1 PATCH EVERY 3-4 DAYS (3.9MG/DAY)
     Route: 062
     Dates: start: 20100902
  2. GELOMYRTOL                         /00405601/ [Concomitant]
     Indication: BRONCHITIS
     Dosage: UNK
     Route: 048
     Dates: start: 20100806
  3. SYMBICORT [Concomitant]
     Indication: LUNG DISORDER
     Dosage: UNK
     Route: 055
     Dates: start: 20100806

REACTIONS (2)
  - CROHN'S DISEASE [None]
  - GASTROINTESTINAL PAIN [None]
